FAERS Safety Report 20526488 (Version 1)
Quarter: 2022Q1

REPORT INFORMATION
  Report Type: Spontaneous
  Country: US (occurrence: None)
  Receive Date: 20220226
  Receipt Date: 20220226
  Transmission Date: 20220423
  Serious: No
  Sender: FDA-Public Use
  Company Number: None

PATIENT
  Age: 39 Year
  Sex: Female
  Weight: 51.75 kg

DRUGS (2)
  1. OVIDREL [Suspect]
     Active Substance: CHORIOGONADOTROPIN ALFA
     Indication: Infertility
     Dates: start: 20220222, end: 20220222
  2. PRENATAL VITAMIN [Concomitant]

REACTIONS (3)
  - Syncope [None]
  - Fall [None]
  - Orthostatic hypotension [None]

NARRATIVE: CASE EVENT DATE: 20220226
